FAERS Safety Report 17287145 (Version 3)
Quarter: 2020Q1

REPORT INFORMATION
  Report Type: Spontaneous
  Country: US (occurrence: US)
  Receive Date: 20200120
  Receipt Date: 20200122
  Transmission Date: 20200409
  Serious: Yes (Other)
  Sender: FDA-Public Use
  Company Number: US-SA-2020SA013501

PATIENT
  Age: 76 Year
  Sex: Female

DRUGS (1)
  1. MULTAQ [Suspect]
     Active Substance: DRONEDARONE
     Indication: ATRIAL FIBRILLATION
     Dosage: 400 MG, BID
     Route: 065
     Dates: start: 20190919

REACTIONS (5)
  - Malaise [Unknown]
  - Abdominal pain upper [Unknown]
  - Atrial tachycardia [Unknown]
  - Pancreatitis [Unknown]
  - Inappropriate schedule of product administration [Unknown]
